FAERS Safety Report 19589632 (Version 1)
Quarter: 2021Q3

REPORT INFORMATION
  Report Type: Spontaneous
  Country: US (occurrence: US)
  Receive Date: 20210721
  Receipt Date: 20210721
  Transmission Date: 20211014
  Serious: Yes (Other)
  Sender: FDA-Public Use
  Company Number: US-AMERICAN REGENT INC-2021001814

PATIENT
  Age: 52 Year
  Sex: Male

DRUGS (6)
  1. INJECTAFER [Suspect]
     Active Substance: FERRIC CARBOXYMALTOSE
     Dosage: 750 MILLIGRAM X 2 SEPARATED BY AT LEAST SEVEN DAYS
     Route: 065
     Dates: start: 202104, end: 202104
  2. INJECTAFER [Suspect]
     Active Substance: FERRIC CARBOXYMALTOSE
     Dosage: 750 MILLIGRAM X 2 SEPARATED BY AT LEAST SEVEN DAYS
     Route: 065
     Dates: start: 202011, end: 202011
  3. INJECTAFER [Suspect]
     Active Substance: FERRIC CARBOXYMALTOSE
     Dosage: 750 MILLIGRAM X 2 SEPARATED BY AT LEAST SEVEN DAYS
     Route: 065
     Dates: start: 202107, end: 202107
  4. INJECTAFER [Suspect]
     Active Substance: FERRIC CARBOXYMALTOSE
     Indication: PRODUCT USED FOR UNKNOWN INDICATION
     Dosage: 750 MILLIGRAM X 2 SEPARATED BY AT LEAST SEVEN DAYS
     Route: 065
     Dates: start: 202006, end: 202006
  5. INJECTAFER [Suspect]
     Active Substance: FERRIC CARBOXYMALTOSE
     Dosage: 750 MILLIGRAM X 2 SEPARATED BY AT LEAST SEVEN DAYS
     Route: 065
     Dates: start: 202008, end: 202008
  6. INJECTAFER [Suspect]
     Active Substance: FERRIC CARBOXYMALTOSE
     Dosage: 750 MILLIGRAM X 2 SEPARATED BY AT LEAST SEVEN DAYS
     Route: 065
     Dates: start: 202103, end: 202103

REACTIONS (5)
  - Back pain [Unknown]
  - Arthralgia [Unknown]
  - Gait inability [Unknown]
  - Gait disturbance [Unknown]
  - Blood phosphorus decreased [Unknown]

NARRATIVE: CASE EVENT DATE: 2021
